FAERS Safety Report 4277790-4 (Version None)
Quarter: 2004Q1

REPORT INFORMATION
  Report Type: 
  Country: None (occurrence: None)
  Receive Date: 20040121
  Receipt Date: 20040115
  Transmission Date: 20041129
  Serious: Yes (Death, Hospitalization)
  Sender: FDA-Public Use
  Company Number: STA-AE-03-MTX-156

PATIENT
  Age: 71 Year
  Sex: Female

DRUGS (13)
  1. RHEUMATREX [Suspect]
     Indication: RHEUMATOID ARTHRITIS
     Dosage: 4 MG 1X PER 1 WK/ORAL
     Route: 048
     Dates: start: 20030827, end: 20030922
  2. RHEUMATREX [Suspect]
     Indication: RHEUMATOID ARTHRITIS
     Dosage: 6 MG 1X PER 1WK/ORAL
     Route: 048
     Dates: start: 20030923, end: 20031005
  3. SELBEX(TEPRENONE) [Concomitant]
  4. ZANTAC [Concomitant]
  5. PREDNISOLONE [Concomitant]
  6. ALFAROL (ALFACALICIDOL) [Concomitant]
  7. VOLTAREN [Concomitant]
  8. RIMTAIL (BUCILLAMINE) [Concomitant]
  9. AZULFIDINE [Concomitant]
  10. MOBIC [Concomitant]
  11. LANSOPRAZOLE [Concomitant]
  12. LOXONIN(LOXOPROFEN SODIUM) [Concomitant]
  13. PREDNISOLONE [Concomitant]

REACTIONS (3)
  - INTERSTITIAL LUNG DISEASE [None]
  - LUNG INFECTION [None]
  - RESPIRATORY FAILURE [None]
